FAERS Safety Report 25815871 (Version 1)
Quarter: 2025Q3

REPORT INFORMATION
  Report Type: Spontaneous
  Country: US (occurrence: US)
  Receive Date: 20250918
  Receipt Date: 20250918
  Transmission Date: 20251021
  Serious: No
  Sender: CATALYST PHARMA
  Company Number: US-CATALYSTPHARMACEUTICALPARTNERS-US-CATA-24-01523

PATIENT

DRUGS (2)
  1. FYCOMPA [Suspect]
     Active Substance: PERAMPANEL
     Indication: Product used for unknown indication
     Route: 065
  2. FYCOMPA [Suspect]
     Active Substance: PERAMPANEL
     Route: 065

REACTIONS (2)
  - Catatonia [Unknown]
  - Mobility decreased [Unknown]
